FAERS Safety Report 15322934 (Version 1)
Quarter: 2018Q3

REPORT INFORMATION
  Report Type: Spontaneous
  Country: SK (occurrence: SK)
  Receive Date: 20180827
  Receipt Date: 20180827
  Transmission Date: 20181010
  Serious: Yes (Hospitalization)
  Sender: FDA-Public Use
  Company Number: SK-TEVA-2018-SK-948543

PATIENT
  Age: 41 Year
  Sex: Female
  Weight: 59 kg

DRUGS (12)
  1. VEROSPIRON [Concomitant]
     Active Substance: SPIRONOLACTONE
     Indication: HYPERTENSION
     Dosage: 1?0?1
  2. PRESTARIUM A 5 MG [Concomitant]
     Indication: HYPERTENSION
     Dosage: 1?0?0
  3. DORETA [Concomitant]
     Active Substance: ACETAMINOPHEN\TRAMADOL HYDROCHLORIDE
     Indication: ANALGESIC THERAPY
     Dosage: 1?0?1
  4. ANOPYRIN [Concomitant]
     Active Substance: ASPIRIN
     Indication: ANTIPLATELET THERAPY
     Dosage: 1?0?0
  5. AMOKSIKLAV [Suspect]
     Active Substance: AMOXICILLIN\CLAVULANATE POTASSIUM
     Indication: INFLAMMATORY MARKER INCREASED
     Dosage: 1?1?1
     Route: 065
     Dates: start: 20180720, end: 20180727
  6. BETALOC ZOK 25 MG [Concomitant]
     Indication: HYPERTENSION
     Dosage: 1?1?1
  7. NOLPAZA [Concomitant]
     Active Substance: PANTOPRAZOLE SODIUM
     Indication: PROPHYLAXIS AGAINST GASTROINTESTINAL ULCER
     Dosage: 0?0?1
  8. ATORIS 20 [Concomitant]
     Indication: HYPERLIPIDAEMIA
     Dosage: 0?0?1
  9. KALDYUM [Concomitant]
     Active Substance: POTASSIUM CHLORIDE
     Indication: HYPOKALAEMIA
     Dosage: 1?1?1
  10. AGEN 5 [Concomitant]
     Indication: HYPERTENSION
     Dosage: 1?0?1 ACCORDING TO BLOOD PRESSURE
  11. AKTIFERRIN COMPOSITUM [Concomitant]
     Indication: ANAEMIA
     Dosage: 1?0?0
  12. VEROSPIRON [Concomitant]
     Active Substance: SPIRONOLACTONE
     Indication: HYPERALDOSTERONISM

REACTIONS (3)
  - Gamma-glutamyltransferase increased [Recovering/Resolving]
  - Alanine aminotransferase increased [Recovering/Resolving]
  - Aspartate aminotransferase increased [Recovering/Resolving]

NARRATIVE: CASE EVENT DATE: 20180723
